FAERS Safety Report 5025042-7 (Version None)
Quarter: 2006Q2

REPORT INFORMATION
  Report Type: 
  Country: None (occurrence: None)
  Receive Date: 20060426
  Receipt Date: 20060224
  Transmission Date: 20061013
  Serious: Yes (Other)
  Sender: FDA-Public Use
  Company Number: 2006028955

PATIENT
  Age: 66 Year
  Sex: Female
  Weight: 41.7309 kg

DRUGS (4)
  1. LYRICA [Suspect]
     Indication: CONVULSION
     Dosage: 25 MG (25 MG, 1 IN 1 D), ORAL
     Route: 048
     Dates: start: 20060101, end: 20060101
  2. MYSOLINE [Concomitant]
  3. GABITRIL [Concomitant]
  4. KEPPRA [Concomitant]

REACTIONS (3)
  - DRY SKIN [None]
  - HEADACHE [None]
  - NASAL DRYNESS [None]
